FAERS Safety Report 10191225 (Version 1)
Quarter: 2014Q2

REPORT INFORMATION
  Report Type: Spontaneous
  Country: US (occurrence: None)
  Receive Date: 20140522
  Receipt Date: 20140522
  Transmission Date: 20141212
  Serious: Yes (Hospitalization)
  Sender: FDA-Public Use
  Company Number: None

PATIENT
  Age: 54 Year
  Sex: Female
  Weight: 117.03 kg

DRUGS (2)
  1. INVANZ 1 GRAM [Suspect]
     Indication: SKIN ULCER
     Route: 042
     Dates: start: 20140418, end: 20140423
  2. INVANZ 1 GRAM [Suspect]
     Indication: WOUND INFECTION
     Route: 042
     Dates: start: 20140418, end: 20140423

REACTIONS (2)
  - Hallucination [None]
  - Mental status changes [None]
